FAERS Safety Report 7864601-0 (Version None)
Quarter: 2011Q4

REPORT INFORMATION
  Report Type: 
  Country: None (occurrence: None)
  Receive Date: 20111028
  Receipt Date: 20110805
  Transmission Date: 20120403
  Serious: No
  Sender: FDA-Public Use
  Company Number: US-GLAXOSMITHKLINE-A0940438A

PATIENT
  Age: 54 Year
  Sex: Female

DRUGS (1)
  1. IMITREX [Suspect]
     Indication: HEADACHE
     Dosage: 20MG UNKNOWN
     Route: 045

REACTIONS (4)
  - HEADACHE [None]
  - DRUG INEFFECTIVE [None]
  - MALAISE [None]
  - NAUSEA [None]
